FAERS Safety Report 6652918-7 (Version None)
Quarter: 2010Q1

REPORT INFORMATION
  Report Type: 
  Country: None (occurrence: None)
  Receive Date: 20100326
  Receipt Date: 20100317
  Transmission Date: 20100710
  Serious: Yes (Death)
  Sender: FDA-Public Use
  Company Number: US-MYLANLABS-2010S1004622

PATIENT
  Sex: Female

DRUGS (1)
  1. FENTANYL CITRATE [Suspect]
     Route: 062
     Dates: start: 20090307, end: 20090308

REACTIONS (3)
  - DRUG TOXICITY [None]
  - RESPIRATORY ARREST [None]
  - UNRESPONSIVE TO STIMULI [None]
